FAERS Safety Report 6531315-9 (Version None)
Quarter: 2010Q1

REPORT INFORMATION
  Report Type: 
  Country: None (occurrence: None)
  Receive Date: 20100108
  Receipt Date: 20100104
  Transmission Date: 20100710
  Serious: Yes (Other)
  Sender: FDA-Public Use
  Company Number: US-SANOFI-AVENTIS-200919410US

PATIENT
  Age: 51 Year
  Sex: Male

DRUGS (8)
  1. ENOXAPARIN SODIUM [Suspect]
     Indication: DEEP VEIN THROMBOSIS
     Dosage: DOSE AS USED: UNK
  2. HEPARIN [Suspect]
     Dosage: DOSE AS USED: UNK
  3. HEPARIN [Suspect]
     Indication: DEEP VEIN THROMBOSIS
     Dosage: DOSE AS USED: UNK
  4. ARIXTRA [Suspect]
     Dosage: DOSE AS USED: UNK
  5. LUNESTA [Concomitant]
     Dosage: Q HS PRN
  6. PLAVIX [Concomitant]
  7. DIAZEPAM [Concomitant]
     Dosage: BID PRN
  8. CLARINEX /USA/ [Concomitant]

REACTIONS (1)
  - ANGIOEDEMA [None]
